FAERS Safety Report 19517497 (Version 1)
Quarter: 2021Q3

REPORT INFORMATION
  Report Type: Report from Study
  Country: None (occurrence: JP)
  Receive Date: 20210712
  Receipt Date: 20210712
  Transmission Date: 20211014
  Serious: Yes (Hospitalization)
  Sender: FDA-Public Use
  Company Number: JP-ABBVIE-21K-087-3982788-00

PATIENT
  Age: 43 Year
  Sex: Male
  Weight: 93 kg

DRUGS (4)
  1. DUODOPA [Suspect]
     Active Substance: CARBIDOPA\LEVODOPA
     Dosage: MD: 8 ML??CD: 1.8 ML/HR X 16 HRS??ED: 1 ML/UNIT X 1
     Route: 050
     Dates: start: 20191129
  2. ROTIGOTINE [Concomitant]
     Active Substance: ROTIGOTINE
     Indication: PARKINSON^S DISEASE
     Route: 062
     Dates: start: 20180516
  3. DUODOPA [Suspect]
     Active Substance: CARBIDOPA\LEVODOPA
     Indication: PARKINSON^S DISEASE
     Dosage: MD: 8 ML??CD: 2 ML/HR X 16 HRS??ED: 1 ML/UNIT X 2
     Route: 050
     Dates: start: 20180515, end: 20180529
  4. DUODOPA [Suspect]
     Active Substance: CARBIDOPA\LEVODOPA
     Dosage: MD: 8 ML??CD: 1.7 ML/HR X 16 HRS??ED: 1 ML/UNIT X 1
     Route: 050
     Dates: start: 20180529, end: 20191129

REACTIONS (1)
  - Embedded device [Unknown]

NARRATIVE: CASE EVENT DATE: 20210707
